FAERS Safety Report 12844120 (Version 2)
Quarter: 2016Q4

REPORT INFORMATION
  Report Type: Spontaneous
  Country: FR (occurrence: FR)
  Receive Date: 20161013
  Receipt Date: 20161208
  Transmission Date: 20170207
  Serious: Yes (Hospitalization, Other)
  Sender: FDA-Public Use
  Company Number: FR-PFIZER INC-2016465958

PATIENT
  Age: 52 Year
  Sex: Male

DRUGS (3)
  1. TOBACCO POWDER [Suspect]
     Active Substance: TOBACCO LEAF
     Dosage: UNK
  2. AVLOCARDYL [Concomitant]
     Active Substance: PROPRANOLOL HYDROCHLORIDE
     Dosage: 40 MG, 2X/DAY
  3. XANAX [Suspect]
     Active Substance: ALPRAZOLAM
     Dosage: 0.5 MG, 3X/DAY

REACTIONS (5)
  - Substance abuser [Recovered/Resolved]
  - Rhabdomyolysis [Recovered/Resolved]
  - Fall [Recovered/Resolved]
  - Withdrawal syndrome [Recovered/Resolved]
  - Hepatitis alcoholic [Unknown]
